FAERS Safety Report 7416110-0 (Version None)
Quarter: 2011Q2

REPORT INFORMATION
  Report Type: 
  Country: None (occurrence: None)
  Receive Date: 20110414
  Receipt Date: 20110401
  Transmission Date: 20111010
  Serious: Yes (Other)
  Sender: FDA-Public Use
  Company Number: US-ELI_LILLY_AND_COMPANY-US201104001102

PATIENT
  Age: 37 Year
  Sex: Male

DRUGS (3)
  1. LISINOPRIL [Concomitant]
  2. STRATTERA [Suspect]
     Indication: ATTENTION DEFICIT/HYPERACTIVITY DISORDER
     Dosage: 20 MG, QD
     Dates: start: 20080101
  3. STRATTERA [Suspect]
     Dosage: 40 MG, QD

REACTIONS (11)
  - HYPERVENTILATION [None]
  - CRYING [None]
  - EJECTION FRACTION DECREASED [None]
  - PANIC ATTACK [None]
  - DYSPNOEA [None]
  - PANIC REACTION [None]
  - HYPERHIDROSIS [None]
  - FALL [None]
  - VISUAL IMPAIRMENT [None]
  - PRESYNCOPE [None]
  - ANXIETY [None]
